FAERS Safety Report 9819992 (Version 1)
Quarter: 2013Q3

REPORT INFORMATION
  Report Type: Spontaneous
  Country: US (occurrence: None)
  Receive Date: 20130924
  Receipt Date: 20130924
  Transmission Date: 20140515
  Serious: Yes (Other)
  Sender: FDA-Public Use
  Company Number: 2013000218

PATIENT
  Age: 52 Year
  Sex: Female

DRUGS (8)
  1. OSPHENA [Suspect]
     Indication: VULVOVAGINAL DRYNESS
     Dates: start: 20130625
  2. OSPHENA [Suspect]
     Indication: OFF LABEL USE
     Dates: start: 20130625
  3. TRIAMTERENE AND HYDROCHLOROTHIAZIDE (HYDROCHLOROTHIAZIDE, TRIAMITERENE) [Concomitant]
  4. ATENOLOL (ATENOLOL) [Concomitant]
  5. MUCINEX [Concomitant]
  6. ESTRADIOL (ESTRADIOL) (GEL) [Concomitant]
  7. TRIPLE MAGNESIUM COMPLEX (MAGNESIUM ASPARTATE, MAGNESIUM CITRATE, MAGNESIUM OXIDE) [Concomitant]
  8. OMEPRAZOLE (OMEPRAZOLE) [Concomitant]

REACTIONS (2)
  - Hot flush [None]
  - Off label use [None]
